FAERS Safety Report 4550676-3 (Version None)
Quarter: 2004Q4

REPORT INFORMATION
  Report Type: 
  Country: None (occurrence: None)
  Receive Date: 20041217
  Receipt Date: 20040830
  Transmission Date: 20050328
  Serious: No
  Sender: FDA-Public Use
  Company Number: 2004-BP-06296BP

PATIENT
  Age: 74 Year
  Sex: Male

DRUGS (7)
  1. SPIRIVA [Suspect]
     Indication: CHRONIC OBSTRUCTIVE AIRWAYS DISEASE
     Dosage: 18 MCG *18 MCG 1 QD) IH
     Route: 055
     Dates: start: 20040701, end: 20040729
  2. ATROVENT [Suspect]
     Indication: CHRONIC OBSTRUCTIVE AIRWAYS DISEASE
  3. FLOVENT [Concomitant]
  4. ALBUTEROL [Concomitant]
  5. SEREVENT [Concomitant]
  6. OXYGEN (OXYGEN) [Concomitant]
  7. UROCIT-K (POTASSIUM CITRATE) [Concomitant]

REACTIONS (4)
  - ANURIA [None]
  - BLADDER DISTENSION [None]
  - SWELLING [None]
  - URINARY RETENTION [None]
